FAERS Safety Report 13356400 (Version 1)
Quarter: 2017Q1

REPORT INFORMATION
  Report Type: Spontaneous
  Country: PL (occurrence: PL)
  Receive Date: 20170321
  Receipt Date: 20170321
  Transmission Date: 20170429
  Serious: Yes (Other)
  Sender: FDA-Public Use
  Company Number: PHHY2017PL036772

PATIENT
  Age: 90 Year
  Sex: Female

DRUGS (2)
  1. AXTIL [Concomitant]
     Indication: PRODUCT USED FOR UNKNOWN INDICATION
     Dosage: 10 MG, UNK
     Route: 065
  2. BETO ZK [Suspect]
     Active Substance: METOPROLOL SUCCINATE
     Indication: ATRIAL FIBRILLATION
     Route: 065

REACTIONS (11)
  - Pruritus [Unknown]
  - Dry mouth [Unknown]
  - Balance disorder [Unknown]
  - Abdominal pain [Unknown]
  - Fatigue [Unknown]
  - Chest pain [Unknown]
  - Obstruction [Unknown]
  - Dyspnoea [Unknown]
  - Visual acuity reduced [Unknown]
  - Dizziness [Unknown]
  - Nasal obstruction [Unknown]
